FAERS Safety Report 10287214 (Version 1)
Quarter: 2014Q3

REPORT INFORMATION
  Report Type: Spontaneous
  Country: US (occurrence: None)
  Receive Date: 20140707
  Receipt Date: 20140707
  Transmission Date: 20150326
  Serious: Yes (Hospitalization)
  Sender: FDA-Public Use
  Company Number: None

PATIENT
  Age: 16 Year
  Sex: Male
  Weight: 51.9 kg

DRUGS (8)
  1. ETOPOSIDE (VP-16) [Suspect]
     Active Substance: ETOPOSIDE
     Dates: start: 20120604, end: 20120608
  2. METHOTREXATE [Suspect]
     Active Substance: METHOTREXATE
     Dosage: IT MIX 15MG, 312.5MG ORAL
     Route: 048
  3. G-CSF (FILGRASTIM, AMGEN) [Suspect]
     Active Substance: FILGRASTIM
     Dates: start: 20130429
  4. CYCLOPHOSPHAMIDE. [Suspect]
     Active Substance: CYCLOPHOSPHAMIDE
  5. DEXAMETHASONE. [Suspect]
     Active Substance: DEXAMETHASONE
  6. DOXORUBICIN HYDROCHLORIDE. [Suspect]
     Active Substance: DOXORUBICIN HYDROCHLORIDE
     Dates: start: 20120429, end: 20130115
  7. MERCAPTOPURINE. [Suspect]
     Active Substance: MERCAPTOPURINE
  8. VINCRISTINE SULFATE. [Suspect]
     Active Substance: VINCRISTINE SULFATE

REACTIONS (4)
  - Febrile neutropenia [None]
  - Cough [None]
  - Acute monocytic leukaemia [None]
  - Unevaluable event [None]

NARRATIVE: CASE EVENT DATE: 20140624
